FAERS Safety Report 9086188 (Version 1)
Quarter: 2013Q1

REPORT INFORMATION
  Report Type: Report from Study
  Country: US (occurrence: US)
  Receive Date: 20130131
  Receipt Date: 20130131
  Transmission Date: 20140127
  Serious: No
  Sender: FDA-Public Use
  Company Number: US-ABBOTT-12P-163-1014464-00

PATIENT
  Age: 72 Year
  Sex: Female

DRUGS (14)
  1. HUMIRA [Suspect]
     Indication: CROHN^S DISEASE
     Dosage: LOADING DOSE
     Route: 058
     Dates: start: 20121113, end: 20121113
  2. HUMIRA [Suspect]
     Route: 058
     Dates: start: 20121127
  3. GLIPIZIDE [Concomitant]
     Indication: DIABETES MELLITUS
  4. 6-MP [Concomitant]
     Indication: PRODUCT USED FOR UNKNOWN INDICATION
  5. PENTASA [Concomitant]
     Indication: PRODUCT USED FOR UNKNOWN INDICATION
  6. JANUVIA [Concomitant]
     Indication: DIABETES MELLITUS
  7. METFORMIN ER [Concomitant]
     Indication: DIABETES MELLITUS
  8. SPIRONOLACTONE [Concomitant]
     Indication: DIURETIC THERAPY
  9. SIMVASTATIN [Concomitant]
     Indication: BLOOD CHOLESTEROL
  10. FOLIC ACID [Concomitant]
     Indication: PRODUCT USED FOR UNKNOWN INDICATION
  11. DOXYCYCLINE [Concomitant]
     Indication: PRODUCT USED FOR UNKNOWN INDICATION
  12. LEVEMIR [Concomitant]
     Indication: PRODUCT USED FOR UNKNOWN INDICATION
     Dosage: DAILY
  13. PRESERVISION [Concomitant]
     Indication: MACULAR DEGENERATION
     Dosage: DAILY
  14. ALIGN [Concomitant]
     Indication: DYSPEPSIA
     Dosage: DAILY

REACTIONS (3)
  - Incorrect dose administered [Unknown]
  - Wrong technique in drug usage process [Unknown]
  - Injection site pain [Recovered/Resolved]
